FAERS Safety Report 9054265 (Version 1)
Quarter: 2013Q1

REPORT INFORMATION
  Report Type: Spontaneous
  Country: FR (occurrence: FR)
  Receive Date: 20130208
  Receipt Date: 20130208
  Transmission Date: 20140127
  Serious: Yes (Hospitalization)
  Sender: FDA-Public Use
  Company Number: FR-GLAXOSMITHKLINE-B0863087A

PATIENT
  Age: 88 None
  Sex: Female

DRUGS (6)
  1. ARIXTRA [Suspect]
     Indication: DEEP VEIN THROMBOSIS
     Dosage: 7.5MG PER DAY
     Route: 058
     Dates: start: 20130102, end: 20130109
  2. PREVISCAN [Suspect]
     Indication: DEEP VEIN THROMBOSIS
     Route: 048
     Dates: start: 20130102, end: 20130109
  3. PLAVIX [Suspect]
     Indication: ARTERIAL DISORDER
     Dosage: 1UNIT PER DAY
     Route: 048
  4. LYRICA [Concomitant]
     Indication: NEURALGIA
     Dosage: 4UNIT PER DAY
     Route: 048
  5. AMLOR [Concomitant]
     Indication: HYPERTENSION
     Dosage: 1UNIT PER DAY
     Route: 048
  6. NEBILOX [Concomitant]

REACTIONS (3)
  - Haematoma [Recovered/Resolved]
  - Anaemia [Unknown]
  - Pain in extremity [Unknown]
